FAERS Safety Report 5792487-7 (Version None)
Quarter: 2008Q2

REPORT INFORMATION
  Report Type: 
  Country: None (occurrence: None)
  Receive Date: 20080626
  Receipt Date: 20080616
  Transmission Date: 20081010
  Serious: Yes (Life-Threatening)
  Sender: FDA-Public Use
  Company Number: JP-PFIZER INC-2008016135

PATIENT
  Sex: Male

DRUGS (7)
  1. XALATAN [Suspect]
     Indication: GLAUCOMA
     Route: 031
     Dates: start: 20061221, end: 20080123
  2. CERNILTON [Suspect]
     Dosage: TEXT:6 TABLETS-FREQ:FREQUENCY:TID
     Route: 048
  3. GASCON [Suspect]
     Dosage: DAILY DOSE:120MG-FREQ:FREQUENCY:TID
     Route: 048
  4. ADETPHOS [Suspect]
     Dosage: DAILY DOSE:30MG-FREQ:FREQUENCY:TID
     Route: 048
  5. LANSOPRAZOLE [Suspect]
     Dosage: TEXT:1TABLET: 1 TABLET-FREQ:FREQUENCY: QD
     Route: 048
  6. ALL OTHER THERAPEUTIC PRODUCTS [Suspect]
     Dosage: DAILY DOSE:5GRAM-FREQ:FREQUENCY: BID
     Route: 048
  7. RESCULA ^FUJISAWA^ [Concomitant]
     Route: 031
     Dates: start: 20070122, end: 20070801

REACTIONS (2)
  - ARRHYTHMIA [None]
  - PAIN [None]
